FAERS Safety Report 18036987 (Version 1)
Quarter: 2020Q3

REPORT INFORMATION
  Report Type: Report from Study
  Country: CA (occurrence: CA)
  Receive Date: 20200717
  Receipt Date: 20200717
  Transmission Date: 20201103
  Serious: Yes (Hospitalization, Other)
  Sender: FDA-Public Use
  Company Number: CA-ACCORD-190625

PATIENT
  Age: 45 Year
  Sex: Female

DRUGS (9)
  1. CELEBREX [Concomitant]
     Active Substance: CELECOXIB
     Indication: PRODUCT USED FOR UNKNOWN INDICATION
  2. TYLENOL [Concomitant]
     Active Substance: ACETAMINOPHEN
     Indication: PRODUCT USED FOR UNKNOWN INDICATION
  3. PULMICORT TURBUHALER [Concomitant]
     Active Substance: BUDESONIDE
     Indication: PRODUCT USED FOR UNKNOWN INDICATION
  4. GINKGO BILOBA/GINKGO BILOBA EXTRACT/GINKGO BILOBA LEAF EXTRACT [Concomitant]
     Active Substance: GINKGO BILOBA LEAF EXTRACT
     Indication: PRODUCT USED FOR UNKNOWN INDICATION
  5. ESOMEPRAZOLE. [Concomitant]
     Active Substance: ESOMEPRAZOLE MAGNESIUM
     Indication: PRODUCT USED FOR UNKNOWN INDICATION
  6. TOPIRAMATE. [Suspect]
     Active Substance: TOPIRAMATE
     Indication: MIGRAINE WITH AURA
     Dosage: 1 EVERY 1 DAYS
  7. ESTRADIOL. [Concomitant]
     Active Substance: ESTRADIOL
     Indication: PRODUCT USED FOR UNKNOWN INDICATION
  8. RIBOFLAVIN [Concomitant]
     Active Substance: RIBOFLAVIN
     Indication: PRODUCT USED FOR UNKNOWN INDICATION
     Dosage: 1 EVERY 1 DAYS
  9. ERGOCALCIFEROL. [Concomitant]
     Active Substance: ERGOCALCIFEROL
     Indication: PRODUCT USED FOR UNKNOWN INDICATION
     Dosage: 1 EVERY 1 DAYS

REACTIONS (32)
  - Migraine [Unknown]
  - Romberg test positive [Unknown]
  - Visual impairment [Unknown]
  - Blindness [Unknown]
  - Finger deformity [Unknown]
  - Nausea [Unknown]
  - Tinnitus [Unknown]
  - Vertigo [Unknown]
  - Disorientation [Unknown]
  - Fall [Unknown]
  - Hyperacusis [Unknown]
  - Injury [Unknown]
  - Carpal tunnel syndrome [Unknown]
  - Hyperaesthesia [Unknown]
  - Kinesiophobia [Unknown]
  - Muscular weakness [Unknown]
  - Nystagmus [Unknown]
  - Pain [Unknown]
  - Hot flush [Unknown]
  - Menopausal symptoms [Unknown]
  - Occipital neuralgia [Unknown]
  - Photophobia [Unknown]
  - Stress [Unknown]
  - Fatigue [Unknown]
  - Loss of consciousness [Unknown]
  - Balance disorder [Unknown]
  - Dizziness [Unknown]
  - Meniere^s disease [Unknown]
  - Peripheral swelling [Unknown]
  - Sleep disorder [Unknown]
  - Tandem gait test abnormal [Unknown]
  - Vertigo positional [Unknown]
